FAERS Safety Report 6085265-5 (Version None)
Quarter: 2009Q1

REPORT INFORMATION
  Report Type: 
  Country: None (occurrence: None)
  Receive Date: 20090220
  Receipt Date: 20090211
  Transmission Date: 20090719
  Serious: Yes (Hospitalization)
  Sender: FDA-Public Use
  Company Number: US-WYE-H08164509

PATIENT
  Sex: Female
  Weight: 47.67 kg

DRUGS (6)
  1. TYGACIL [Suspect]
     Indication: CELLULITIS
     Dosage: 150 MG DAILY
     Route: 042
     Dates: start: 20090206, end: 20090210
  2. PRAVACHOL [Concomitant]
     Indication: BLOOD CHOLESTEROL INCREASED
     Route: 048
     Dates: start: 20081201
  3. PRINIVIL [Concomitant]
     Indication: HYPERTENSION
     Route: 048
     Dates: start: 20081201
  4. LOMOTIL [Concomitant]
     Indication: DIARRHOEA
     Dosage: UNKNOWN
     Dates: start: 20090210
  5. GLUCOPHAGE [Concomitant]
     Indication: DIABETES MELLITUS
     Route: 048
     Dates: start: 20040101
  6. ASPIRIN [Concomitant]
     Indication: PROPHYLAXIS
     Route: 048

REACTIONS (3)
  - DEHYDRATION [None]
  - NAUSEA [None]
  - VOMITING [None]
